FAERS Safety Report 18377237 (Version 2)
Quarter: 2020Q4

REPORT INFORMATION
  Report Type: Report from Study
  Country: BE (occurrence: BE)
  Receive Date: 20201013
  Receipt Date: 20201030
  Transmission Date: 20210114
  Serious: Yes (Hospitalization)
  Sender: FDA-Public Use
  Company Number: BE-JNJFOC-20201014028

PATIENT
  Age: 75 Year
  Sex: Male
  Weight: 74 kg

DRUGS (17)
  1. ATORVASTATIN [Concomitant]
     Active Substance: ATORVASTATIN
     Dosage: 80 MG, QD
     Dates: start: 2015
  2. SPIRONOLACTONE. [Concomitant]
     Active Substance: SPIRONOLACTONE
     Dosage: 25 MG, QD
  3. DUOVENT [Concomitant]
     Active Substance: FENOTEROL HYDROBROMIDE
     Dosage: 4 ML, QD
     Dates: start: 20190519
  4. PANTOMED D [Concomitant]
     Dosage: 40 MG, BID
     Dates: start: 20191106
  5. PLENDIL [Concomitant]
     Active Substance: FELODIPINE
     Dosage: 5 MG, QD
  6. XARELTO [Suspect]
     Active Substance: RIVAROXABAN
     Indication: PERIPHERAL ARTERIAL OCCLUSIVE DISEASE
     Dosage: 2.5 MG, BID
     Route: 048
     Dates: start: 20201008
  7. ACETYLSALICYLIC ACID [Suspect]
     Active Substance: ASPIRIN
     Indication: CARDIOVASCULAR EVENT PROPHYLAXIS
  8. BREO ELLIPTA [Concomitant]
     Active Substance: FLUTICASONE FUROATE\VILANTEROL TRIFENATATE
     Dosage: 92 UG, QD
     Dates: start: 20190920
  9. MICTONORM [Concomitant]
     Active Substance: PROPIVERINE HYDROCHLORIDE
     Dosage: 15 MG, QD
     Dates: start: 20180807
  10. BISOPROLOL [Concomitant]
     Active Substance: BISOPROLOL
     Dosage: 2.5 MG, QD
     Dates: start: 20191010, end: 2020
  11. XARELTO [Suspect]
     Active Substance: RIVAROXABAN
     Indication: CARDIOVASCULAR EVENT PROPHYLAXIS
  12. ANGINA MCC [Concomitant]
     Active Substance: CETYLPYRIDINIUM CHLORIDE\LEVOMENTHOL\LIDOCAINE HYDROCHLORIDE
     Dosage: 16 MG, QD
     Dates: start: 2015
  13. ACETYLSALICYLIC ACID [Suspect]
     Active Substance: ASPIRIN
     Indication: PERIPHERAL ARTERIAL OCCLUSIVE DISEASE
  14. SYMBICORT [Concomitant]
     Active Substance: BUDESONIDE\FORMOTEROL FUMARATE DIHYDRATE
     Dosage: 400 UG, PRN
     Dates: start: 2007
  15. XARELTO [Suspect]
     Active Substance: RIVAROXABAN
     Indication: CORONARY ARTERY DISEASE
     Dosage: 2.5 MG, BID
     Route: 048
     Dates: start: 20200701, end: 20201004
  16. ACETYLSALICYLIC ACID [Suspect]
     Active Substance: ASPIRIN
     Indication: CORONARY ARTERY DISEASE
     Dosage: 75 MG, QD
     Route: 065
  17. ANDROCUR [Concomitant]
     Active Substance: CYPROTERONE ACETATE
     Dosage: 50 MG, QD
     Dates: start: 20170327, end: 2020

REACTIONS (1)
  - Discoloured vomit [Recovered/Resolved]

NARRATIVE: CASE EVENT DATE: 20201004
